FAERS Safety Report 7405318-6 (Version None)
Quarter: 2011Q2

REPORT INFORMATION
  Report Type: 
  Country: None (occurrence: None)
  Receive Date: 20110411
  Receipt Date: 20110329
  Transmission Date: 20111010
  Serious: Yes (Other)
  Sender: FDA-Public Use
  Company Number: PHFR2011GB02040

PATIENT
  Sex: Male

DRUGS (7)
  1. MST [Concomitant]
  2. ALBUTEROL SULFATE AUTOHALER [Concomitant]
  3. DEXAMETHASONE [Concomitant]
  4. FLUOXETINE [Concomitant]
  5. CLOZARIL [Suspect]
     Indication: SCHIZOPHRENIA
     Dosage: 350 MG, UNK
     Route: 048
     Dates: start: 20090901
  6. VALPROATE SODIUM [Concomitant]
  7. ORAMORPH SR [Concomitant]

REACTIONS (6)
  - WHITE BLOOD CELL COUNT INCREASED [None]
  - COUGH [None]
  - NEUTROPHIL COUNT INCREASED [None]
  - LUNG ADENOCARCINOMA [None]
  - METASTASIS [None]
  - LOWER RESPIRATORY TRACT INFECTION [None]
